FAERS Safety Report 5323190-5 (Version None)
Quarter: 2007Q2

REPORT INFORMATION
  Report Type: 
  Country: None (occurrence: None)
  Receive Date: 20070220
  Receipt Date: 20061115
  Transmission Date: 20071010
  Serious: No
  Sender: FDA-Public Use
  Company Number: WAES 0611USA04878

PATIENT
  Age: 62 Year
  Sex: Female
  Weight: 107.9561 kg

DRUGS (6)
  1. JANUVIA [Suspect]
     Indication: DIABETES MELLITUS NON-INSULIN-DEPENDENT
     Dosage: 100 MG/DAILY/PO
     Route: 048
     Dates: start: 20061106, end: 20061109
  2. AMARYL [Concomitant]
  3. GLUMETZA [Concomitant]
  4. NOVOLOG [Concomitant]
  5. FERROUS SULFATE TAB [Concomitant]
  6. LISINOPRIL [Concomitant]

REACTIONS (1)
  - OEDEMA PERIPHERAL [None]
